FAERS Safety Report 8889447 (Version 1)
Quarter: 2012Q4

REPORT INFORMATION
  Report Type: Spontaneous
  Country: US (occurrence: None)
  Receive Date: 20121102
  Receipt Date: 20121102
  Transmission Date: 20130627
  Serious: Yes (Hospitalization)
  Sender: FDA-Public Use
  Company Number: None

PATIENT
  Age: 47 Year
  Sex: Female
  Weight: 77.3 kg

DRUGS (1)
  1. BORTEZOMIB [Suspect]
     Route: 042
     Dates: start: 20120709, end: 20120921

REACTIONS (6)
  - Back pain [None]
  - Oedema peripheral [None]
  - Medical device complication [None]
  - Rash [None]
  - Application site erythema [None]
  - Venous occlusion [None]
